FAERS Safety Report 18647281 (Version 1)
Quarter: 2020Q4

REPORT INFORMATION
  Report Type: Spontaneous
  Country: US (occurrence: US)
  Receive Date: 20201222
  Receipt Date: 20201222
  Transmission Date: 20210114
  Serious: No
  Sender: FDA-Public Use
  Company Number: US-JNJFOC-20201233611

PATIENT
  Age: 6 Decade
  Sex: Female
  Weight: 165 kg

DRUGS (1)
  1. REMICADE [Suspect]
     Active Substance: INFLIXIMAB
     Indication: RETINOPATHY
     Route: 042
     Dates: start: 2017

REACTIONS (8)
  - Nausea [Recovering/Resolving]
  - Product dose omission issue [Unknown]
  - Lethargy [Recovering/Resolving]
  - Palpitations [Recovering/Resolving]
  - Product use in unapproved indication [Unknown]
  - Influenza [Recovering/Resolving]
  - Sinus pain [Recovering/Resolving]
  - Off label use [Unknown]

NARRATIVE: CASE EVENT DATE: 2017
